FAERS Safety Report 6407822-6 (Version None)
Quarter: 2009Q4

REPORT INFORMATION
  Report Type: 
  Country: None (occurrence: None)
  Receive Date: 20091015
  Receipt Date: 20090930
  Transmission Date: 20100525
  Serious: Yes (Disabling)
  Sender: FDA-Public Use
  Company Number: DSM-2009-01487

PATIENT
  Age: 46 Year
  Sex: Female

DRUGS (1)
  1. OLMESARTAN MEDOXOMIL [Suspect]
     Indication: HYPERTENSION
     Dosage: 10 MG,ORAL
     Route: 048
     Dates: start: 20030101, end: 20080101

REACTIONS (2)
  - TENDON RUPTURE [None]
  - TENDONITIS [None]
